FAERS Safety Report 23079117 (Version 1)
Quarter: 2023Q4

REPORT INFORMATION
  Report Type: Other
  Country: US (occurrence: None)
  Receive Date: 20231018
  Receipt Date: 20231018
  Transmission Date: 20240109
  Serious: Yes (Hospitalization)
  Sender: FDA-Public Use
  Company Number: US-ROCHE-3438727

PATIENT
  Age: 65 Year
  Sex: Male

DRUGS (4)
  1. OCREVUS [Suspect]
     Active Substance: OCRELIZUMAB
     Indication: Primary progressive multiple sclerosis
     Route: 042
     Dates: start: 20220211
  2. ZANAFLEX [Concomitant]
     Active Substance: TIZANIDINE HYDROCHLORIDE
  3. ACALABRUTINIB [Concomitant]
     Active Substance: ACALABRUTINIB
  4. AVONEX [Concomitant]
     Active Substance: INTERFERON BETA-1A

REACTIONS (3)
  - Urinary tract infection [Not Recovered/Not Resolved]
  - Bile duct stone [Not Recovered/Not Resolved]
  - Nephrolithiasis [Not Recovered/Not Resolved]
